FAERS Safety Report 22256688 (Version 1)
Quarter: 2023Q2

REPORT INFORMATION
  Report Type: Spontaneous
  Country: LT (occurrence: None)
  Receive Date: 20230426
  Receipt Date: 20230426
  Transmission Date: 20230721
  Serious: Yes (Hospitalization)
  Sender: FDA-Public Use
  Company Number: LT-Eisai Medical Research-EC-2023-138636

PATIENT
  Sex: Male

DRUGS (1)
  1. LENVATINIB [Suspect]
     Active Substance: LENVATINIB
     Indication: Foetal exposure during pregnancy
     Dosage: DOSE AND FREQUENCY UNKNOWN
     Route: 064

REACTIONS (3)
  - Respiratory failure [Unknown]
  - Premature baby [Unknown]
  - Foetal exposure during pregnancy [Unknown]
